FAERS Safety Report 7633366-X (Version None)
Quarter: 2011Q3

REPORT INFORMATION
  Report Type: 
  Country: None (occurrence: None)
  Receive Date: 20110725
  Receipt Date: 20110222
  Transmission Date: 20111222
  Serious: No
  Sender: FDA-Public Use
  Company Number: US-BRISTOL-MYERS SQUIBB COMPANY-15334501

PATIENT
  Age: 79 Year
  Sex: Female
  Weight: 63 kg

DRUGS (1)
  1. SPRYCEL [Suspect]
     Dosage: DOSE DECREASED TO 50 MG AND UPTO 100 MG
     Dates: start: 20100101

REACTIONS (3)
  - FLUID RETENTION [None]
  - PERIORBITAL OEDEMA [None]
  - WEIGHT INCREASED [None]
